FAERS Safety Report 6631461-5 (Version None)
Quarter: 2010Q1

REPORT INFORMATION
  Report Type: 
  Country: None (occurrence: None)
  Receive Date: 20100311
  Receipt Date: 20100311
  Transmission Date: 20100710
  Serious: Yes (Hospitalization)
  Sender: FDA-Public Use
  Company Number: None

PATIENT
  Sex: Female
  Weight: 73.1 kg

DRUGS (1)
  1. NEULASTA [Suspect]

REACTIONS (3)
  - DYSPNOEA [None]
  - FATIGUE [None]
  - PYREXIA [None]
